FAERS Safety Report 25167085 (Version 1)
Quarter: 2025Q2

REPORT INFORMATION
  Report Type: Spontaneous
  Country: HU (occurrence: HU)
  Receive Date: 20250407
  Receipt Date: 20250407
  Transmission Date: 20250716
  Serious: Yes (Hospitalization, Other)
  Sender: MYLAN
  Company Number: HU-RICHTER-2025-GR-002370

PATIENT
  Age: 70 Year
  Sex: Female

DRUGS (12)
  1. ZOLEDRONIC ACID [Suspect]
     Active Substance: ZOLEDRONIC ACID
     Indication: Bone lesion
     Dosage: 4 MILLIGRAM, MONTHLY (INTRAVENOUS DRIP)
  2. CALCIUM [Suspect]
     Active Substance: CALCIUM
     Indication: Bone lesion
  3. CALCIUM [Suspect]
     Active Substance: CALCIUM
     Indication: Supplementation therapy
  4. VITAMIN D [Suspect]
     Active Substance: VITAMIN D NOS
     Indication: Bone lesion
  5. VITAMIN D [Suspect]
     Active Substance: VITAMIN D NOS
     Indication: Supplementation therapy
  6. LENALIDOMIDE [Suspect]
     Active Substance: LENALIDOMIDE
     Indication: Plasmacytoma
     Dosage: 25 MILLIGRAM, QD (25 MG DAILY FOR 21/28 DAYS)
     Dates: start: 20121010
  7. LENALIDOMIDE [Suspect]
     Active Substance: LENALIDOMIDE
     Indication: Plasma cell myeloma
     Dosage: 15 MILLIGRAM, QD, 25 MG, PER DAY, CYCLE 134
  8. LENALIDOMIDE [Suspect]
     Active Substance: LENALIDOMIDE
     Dosage: 10 MILLIGRAM, QD, 10 MG, PER DAY,AT CYCLE 58
  9. DEXAMETHASONE [Suspect]
     Active Substance: DEXAMETHASONE
     Indication: Plasma cell myeloma
     Dosage: 40 MILLIGRAM, QW (WEEKLY)
     Dates: start: 20121010
  10. DEXAMETHASONE [Suspect]
     Active Substance: DEXAMETHASONE
     Indication: Plasmacytoma
  11. ENOXAPARIN [Concomitant]
     Active Substance: ENOXAPARIN
     Indication: Thrombosis prophylaxis
  12. HERBALS\TURMERIC [Concomitant]
     Active Substance: HERBALS\TURMERIC

REACTIONS (5)
  - Gastroenteritis clostridial [Unknown]
  - Hallucination, visual [Unknown]
  - Osteonecrosis of jaw [Unknown]
  - Diarrhoea [Unknown]
  - Drug ineffective [Recovered/Resolved]
